FAERS Safety Report 10911382 (Version 3)
Quarter: 2015Q1

REPORT INFORMATION
  Report Type: Report from Study
  Country: CO (occurrence: CO)
  Receive Date: 20150313
  Receipt Date: 20150327
  Transmission Date: 20150721
  Serious: Yes (Life-Threatening, Other)
  Sender: FDA-Public Use
  Company Number: CO-ROCHE-1550909

PATIENT
  Age: 12 Year
  Sex: Female
  Weight: 31 kg

DRUGS (4)
  1. BUDESONIDE/FORMOTEROL [Concomitant]
     Active Substance: BUDESONIDE\FORMOTEROL
  2. SALBUTAMOL [Concomitant]
     Active Substance: ALBUTEROL
  3. OMALIZUMAB [Suspect]
     Active Substance: OMALIZUMAB
     Indication: ASTHMA
     Dosage: 1 DF, BIW,
     Route: 058
     Dates: start: 20110201
  4. OMALIZUMAB [Suspect]
     Active Substance: OMALIZUMAB
     Indication: HAEMOGLOBIN E
     Dosage: 2 DF, EVERY 15 DAYS,
     Route: 058
     Dates: end: 20150302

REACTIONS (9)
  - Eye oedema [Recovered/Resolved]
  - Sneezing [Unknown]
  - Dyspnoea [Unknown]
  - Bacterial infection [Recovered/Resolved]
  - Rhinorrhoea [Unknown]
  - Oropharyngeal pain [Unknown]
  - Headache [Unknown]
  - Asthma [Unknown]
  - Rash [Unknown]

NARRATIVE: CASE EVENT DATE: 20150302
